FAERS Safety Report 14461415 (Version 1)
Quarter: 2018Q1

REPORT INFORMATION
  Report Type: Report from Study
  Country: US (occurrence: US)
  Receive Date: 20180130
  Receipt Date: 20180130
  Transmission Date: 20180509
  Serious: No
  Sender: FDA-Public Use
  Company Number: US-ALEXION PHARMACEUTICALS INC.-A201800903

PATIENT
  Sex: Male

DRUGS (2)
  1. SOLIRIS [Suspect]
     Active Substance: ECULIZUMAB
     Indication: PRODUCT USED FOR UNKNOWN INDICATION
     Dosage: UNK
     Route: 065
  2. SOLIRIS [Suspect]
     Active Substance: ECULIZUMAB
     Dosage: UNK
     Route: 065

REACTIONS (13)
  - Haemoglobin abnormal [Recovered/Resolved]
  - Blood creatinine abnormal [Recovered/Resolved]
  - Haematocrit abnormal [Recovered/Resolved]
  - Neutrophil count abnormal [Recovered/Resolved]
  - Lymphocyte count abnormal [Recovered/Resolved]
  - Red blood cell abnormality [Recovered/Resolved]
  - Anion gap abnormal [Recovered/Resolved]
  - Blood chloride abnormal [Recovered/Resolved]
  - Blood urea abnormal [Recovered/Resolved]
  - Protein total increased [Recovered/Resolved]
  - Red cell distribution width abnormal [Recovered/Resolved]
  - Blood urea nitrogen/creatinine ratio decreased [Recovered/Resolved]
  - Platelet count abnormal [Recovered/Resolved]
